FAERS Safety Report 4388191-2 (Version None)
Quarter: 2004Q2

REPORT INFORMATION
  Report Type: 
  Country: None (occurrence: None)
  Receive Date: 20040629
  Receipt Date: 20040629
  Transmission Date: 20050107
  Serious: Yes (Disabling)
  Sender: FDA-Public Use
  Company Number: None

PATIENT
  Sex: Male
  Weight: 85.7298 kg

DRUGS (7)
  1. LEVAQUIN [Suspect]
     Dosage: 500 MG 1-2 DAYS ON ORAL
     Route: 048
  2. TOPROL-XL [Concomitant]
  3. ATACAND [Concomitant]
  4. TAMBOCAR [Concomitant]
  5. DIGITEK [Concomitant]
  6. COUMADEN [Concomitant]
  7. PREDNISONE [Concomitant]

REACTIONS (3)
  - DECREASED ACTIVITY [None]
  - TENDON DISORDER [None]
  - TENDON RUPTURE [None]
